FAERS Safety Report 5509429-1 (Version None)
Quarter: 2007Q4

REPORT INFORMATION
  Report Type: 
  Country: None (occurrence: None)
  Receive Date: 20071106
  Receipt Date: 20071022
  Transmission Date: 20080405
  Serious: Yes (Other)
  Sender: FDA-Public Use
  Company Number: 237102K07USA

PATIENT
  Age: 70 Year
  Sex: Male

DRUGS (14)
  1. REBIF [Suspect]
     Indication: MULTIPLE SCLEROSIS
     Dosage: 44 MCG,3 IN 1 WEEKS, SUBCUTANEOUS
     Route: 058
     Dates: start: 20070723
  2. GLUCOPHAGE ER (METFORMIN) [Concomitant]
  3. PLAVIX [Concomitant]
  4. PENTOXIFYLLIN (PENTOXIFYLLINE) [Concomitant]
  5. AMARYL [Concomitant]
  6. NEXIUM [Concomitant]
  7. ZETIA [Concomitant]
  8. FLOMAX (MORNIFLUMATE) [Concomitant]
  9. PROPO-N/APAP (PROPACET) [Concomitant]
  10. AMBIEN [Concomitant]
  11. NEURONTIN [Concomitant]
  12. CENTRUM SILVER (CENTRUM SILVER) [Concomitant]
  13. SENNA (SENNA ALEXANDRINA) [Concomitant]
  14. ADDERALL XR 10 [Concomitant]

REACTIONS (3)
  - METASTASES TO LYMPH NODES [None]
  - NON-SMALL CELL LUNG CANCER STAGE IIIA [None]
  - SKIN ULCER [None]
